FAERS Safety Report 8535118-5 (Version None)
Quarter: 2012Q3

REPORT INFORMATION
  Report Type: 
  Country: None (occurrence: None)
  Receive Date: 20120724
  Receipt Date: 20070516
  Transmission Date: 20120928
  Serious: Yes (Other)
  Sender: FDA-Public Use
  Company Number: CO-PFIZER INC-2012174967

PATIENT
  Age: 67 Year
  Sex: Female

DRUGS (8)
  1. LIPITOR [Suspect]
     Indication: DYSLIPIDAEMIA
     Dosage: 10 MG, 1X/DAY
  2. GLIBENCLAMIDE [Concomitant]
     Dosage: 5 MG, 2X/DAY
  3. AMLODIPINE BESILATE [Concomitant]
     Dosage: 5 MG, 1X/DAY
  4. ACETYLSALICYLIC ACID [Concomitant]
     Dosage: 100 MG, 1X/DAY
  5. METOPROLOL TARTRATE [Concomitant]
     Dosage: 50 MG, 2X/DAY
  6. CIPROFLOXACIN [Concomitant]
     Dosage: 500 MG, 2X/DAY
  7. QUINAPRIL AND HYDROCHLOROTHIAZIDE [Suspect]
     Indication: HYPERTENSION
     Dosage: 32.5 MG, 1X/DAY
  8. METFORMIN [Concomitant]
     Indication: DIABETES MELLITUS
     Dosage: 850 MG, 1X/DAY

REACTIONS (5)
  - HYPERTENSIVE EMERGENCY [None]
  - PAIN IN EXTREMITY [None]
  - EXERCISE LACK OF [None]
  - PYURIA [None]
  - BACK PAIN [None]
